FAERS Safety Report 24964820 (Version 3)
Quarter: 2025Q3

REPORT INFORMATION
  Report Type: Other
  Country: JP (occurrence: JP)
  Receive Date: 20250213
  Receipt Date: 20250909
  Transmission Date: 20251020
  Serious: Yes (Hospitalization)
  Sender: EMD SERONO INC
  Company Number: JP-Merck Healthcare KGaA-2025005636

PATIENT
  Age: 8 Decade
  Sex: Male

DRUGS (1)
  1. TEPMETKO [Suspect]
     Active Substance: TEPOTINIB HYDROCHLORIDE
     Indication: Lung carcinoma cell type unspecified stage IV

REACTIONS (1)
  - Intestinal ischaemia [Recovering/Resolving]
